FAERS Safety Report 5453746-0 (Version None)
Quarter: 2007Q3

REPORT INFORMATION
  Report Type: 
  Country: None (occurrence: None)
  Receive Date: 20070917
  Receipt Date: 20070907
  Transmission Date: 20080115
  Serious: Yes (Other)
  Sender: FDA-Public Use
  Company Number: US-ELI_LILLY_AND_COMPANY-US200708005947

PATIENT
  Age: 15 Year
  Sex: Male
  Weight: 35.5 kg

DRUGS (3)
  1. SOMATROPIN [Suspect]
     Dosage: 1.6 MG, DAILY (1/D)
     Route: 058
     Dates: start: 20070330, end: 20070820
  2. FLORINEF [Concomitant]
     Indication: DIZZINESS
     Dosage: 0.1 MG, DAILY (1/D)
     Dates: start: 20070501
  3. LUPRON [Concomitant]
     Dosage: 7.5 MG, OTHER
     Route: 030

REACTIONS (1)
  - ASTROCYTOMA [None]
